FAERS Safety Report 10182791 (Version 3)
Quarter: 2014Q2

REPORT INFORMATION
  Report Type: Spontaneous
  Country: JP (occurrence: JP)
  Receive Date: 20140520
  Receipt Date: 20140620
  Transmission Date: 20141212
  Serious: Yes (Other)
  Sender: FDA-Public Use
  Company Number: JP-BAYER-2014-070770

PATIENT
  Age: 28 Year
  Sex: Female

DRUGS (1)
  1. YAZ [Suspect]
     Indication: MENSTRUATION IRREGULAR
     Dosage: UNK
     Route: 048
     Dates: start: 201307, end: 20140512

REACTIONS (6)
  - Haemorrhage subcutaneous [Unknown]
  - Malaise [None]
  - Palpitations [None]
  - Stomatitis [Not Recovered/Not Resolved]
  - Epistaxis [Unknown]
  - Off label use [None]
